FAERS Safety Report 11092425 (Version 1)
Quarter: 2015Q2

REPORT INFORMATION
  Report Type: Spontaneous
  Country: US (occurrence: None)
  Receive Date: 20150505
  Receipt Date: 20150505
  Transmission Date: 20150821
  Serious: Yes (Life-Threatening, Hospitalization)
  Sender: FDA-Public Use
  Company Number: None

PATIENT
  Age: 50 Year
  Sex: Female

DRUGS (24)
  1. ACABOSE [Concomitant]
  2. LEVOTHYROXINE [Concomitant]
     Active Substance: LEVOTHYROXINE
  3. AMERGE [Concomitant]
     Active Substance: NARATRIPTAN HYDROCHLORIDE
  4. PROTONIX [Concomitant]
     Active Substance: PANTOPRAZOLE SODIUM
  5. RECLAST [Suspect]
     Active Substance: ZOLEDRONIC ACID
     Indication: OSTEOPOROSIS
     Dosage: 5 MG. PER 100 ML IU, 0.05MG, ONCE, I.U.
     Route: 015
     Dates: start: 20130312, end: 20130312
  6. VITAMIN B COMPLEX [Concomitant]
     Active Substance: CYANOCOBALAMIN\DEXPANTHENOL\NIACINAMIDE\PYRIDOXINE HYDROCHLORIDE\RIBOFLAVIN 5^-PHOSPHATE SODIUM\THIAMINE HYDROCHLORIDE\VITAMIN B COMPLEX
  7. VITAMIN D3 [Concomitant]
     Active Substance: CHOLECALCIFEROL
  8. ESTRADIOL??? [Concomitant]
  9. LEPRESSO [Concomitant]
  10. VITROSTATE [Concomitant]
  11. MYSOLINE [Concomitant]
     Active Substance: PRIMIDONE
  12. POTASSIUM CHLORIDE?? [Concomitant]
  13. COMBIVENT [Concomitant]
     Active Substance: ALBUTEROL SULFATE\IPRATROPIUM BROMIDE
  14. VITAMIN B12 [Concomitant]
     Active Substance: CYANOCOBALAMIN
  15. IRIDAPRAMIDE [Concomitant]
  16. ALBUTEROL. [Concomitant]
     Active Substance: ALBUTEROL
  17. LASIX [Concomitant]
     Active Substance: FUROSEMIDE
  18. ZOFRAN [Concomitant]
     Active Substance: ONDANSETRON HYDROCHLORIDE
  19. MIRTAZOPRE [Concomitant]
  20. PATONAL ??? [Concomitant]
  21. ALPRAZOLAM. [Concomitant]
     Active Substance: ALPRAZOLAM
  22. ALLEGRA [Concomitant]
     Active Substance: FEXOFENADINE HYDROCHLORIDE
  23. REQUIP [Concomitant]
     Active Substance: ROPINIROLE HYDROCHLORIDE
  24. TYENOL-CHILDREN^S LIQUID [Concomitant]

REACTIONS (7)
  - Tetany [None]
  - Blood calcium decreased [None]
  - Blood potassium decreased [None]
  - Tachycardia [None]
  - Middle insomnia [None]
  - Body temperature increased [None]
  - Blood magnesium decreased [None]

NARRATIVE: CASE EVENT DATE: 20130311
